FAERS Safety Report 5709368-7 (Version None)
Quarter: 2008Q2

REPORT INFORMATION
  Report Type: 
  Country: None (occurrence: None)
  Receive Date: 20080418
  Receipt Date: 20080415
  Transmission Date: 20081010
  Serious: Yes (Hospitalization)
  Sender: FDA-Public Use
  Company Number: FR-BRISTOL-MYERS SQUIBB COMPANY-14151898

PATIENT
  Age: 67 Year
  Sex: Male

DRUGS (4)
  1. CISPLATIN [Suspect]
     Indication: SQUAMOUS CELL CARCINOMA
     Route: 042
     Dates: start: 20080318
  2. BLINDED: LAPATINIB [Suspect]
  3. BLINDED: PLACEBO [Suspect]
     Indication: SQUAMOUS CELL CARCINOMA
     Route: 048
     Dates: start: 20080311
  4. RADIOTHERAPY [Suspect]
     Indication: SQUAMOUS CELL CARCINOMA
     Route: 061

REACTIONS (3)
  - ANOREXIA [None]
  - MUCOSAL INFLAMMATION [None]
  - WEIGHT DECREASED [None]
